FAERS Safety Report 9227329 (Version 10)
Quarter: 2014Q2

REPORT INFORMATION
  Report Type: Spontaneous
  Country: GB (occurrence: None)
  Receive Date: 20130410
  Receipt Date: 20140425
  Transmission Date: 20141212
  Serious: Yes (Death, Hospitalization, Other)
  Sender: FDA-Public Use
  Company Number: AUR-APL-2013-02754

PATIENT
  Age: 87 Year
  Sex: Male
  Weight: 68 kg

DRUGS (8)
  1. FUSIDIC ACID [Suspect]
     Indication: STAPHYLOCOCCAL INFECTION
     Dosage: 1500 MG (500 MG, 3 IN 1 D), ORAL
     Route: 048
     Dates: start: 20121220, end: 20130211
  2. CLARITHROMYCIN [Suspect]
     Indication: OSTEOMYELITIS
     Dosage: 1000 MG (500 MG 2 IN 1 D), UNK
     Dates: start: 20121101, end: 20130211
  3. CLARITHROMYCIN [Suspect]
     Indication: OSTEOMYELITIS
     Dosage: 1000 MG (500 MG 2 IN 1 D), UNK
     Dates: start: 20121101, end: 20130211
  4. LANSOPRAZOLE (LANSOPRAZOLE) [Suspect]
     Indication: PRODUCT USED FOR UNKNOWN INDICATION
  5. LANTUS (INSULIN GLARGINE) [Concomitant]
  6. ASPIRIN (ACETYLSALICYLIC ACID) [Concomitant]
  7. SIMVASTATIN [Suspect]
     Indication: HYPERCHOLESTEROLAEMIA
     Route: 048
     Dates: start: 2012
  8. FUSIDIC ACID [Suspect]
     Indication: OSTEOMYELITIS
     Dosage: 1500 MG (500 MG, 3 IN 1 D), ORAL
     Route: 048
     Dates: start: 20121220, end: 20130211

REACTIONS (8)
  - Rhabdomyolysis [None]
  - Medication error [None]
  - Sepsis [None]
  - Staphylococcal infection [None]
  - Drug interaction [None]
  - Incorrect drug administration duration [None]
  - Renal failure acute [None]
  - Sepsis [None]
